FAERS Safety Report 25114210 (Version 1)
Quarter: 2025Q1

REPORT INFORMATION
  Report Type: Spontaneous
  Country: US (occurrence: US)
  Receive Date: 20250324
  Receipt Date: 20250324
  Transmission Date: 20250409
  Serious: Yes (Other)
  Sender: DR REDDYS
  Company Number: US-DRL-USA-USA/2025/03/004228

PATIENT
  Age: 20 Year
  Sex: Female

DRUGS (12)
  1. TETRABENAZINE [Suspect]
     Active Substance: TETRABENAZINE
     Indication: Silver-Russell syndrome
  2. TETRABENAZINE [Suspect]
     Active Substance: TETRABENAZINE
     Indication: Myoclonic dystonia
  3. LEVETIRACETAM [Suspect]
     Active Substance: LEVETIRACETAM
     Indication: Silver-Russell syndrome
  4. LEVETIRACETAM [Suspect]
     Active Substance: LEVETIRACETAM
     Indication: Myoclonic dystonia
  5. TOPIRAMATE [Concomitant]
     Active Substance: TOPIRAMATE
     Indication: Silver-Russell syndrome
  6. TOPIRAMATE [Concomitant]
     Active Substance: TOPIRAMATE
     Indication: Myoclonic dystonia
  7. GABAPENTIN [Concomitant]
     Active Substance: GABAPENTIN
     Indication: Silver-Russell syndrome
  8. GABAPENTIN [Concomitant]
     Active Substance: GABAPENTIN
     Indication: Myoclonic dystonia
  9. PROPRANOLOL [Concomitant]
     Active Substance: PROPRANOLOL HYDROCHLORIDE
     Indication: Silver-Russell syndrome
  10. PROPRANOLOL [Concomitant]
     Active Substance: PROPRANOLOL HYDROCHLORIDE
     Indication: Myoclonic dystonia
  11. CLONAZEPAM [Concomitant]
     Active Substance: CLONAZEPAM
     Indication: Silver-Russell syndrome
  12. CLONAZEPAM [Concomitant]
     Active Substance: CLONAZEPAM
     Indication: Myoclonic dystonia

REACTIONS (1)
  - Drug ineffective for unapproved indication [Unknown]
